FAERS Safety Report 15117621 (Version 1)
Quarter: 2018Q3

REPORT INFORMATION
  Report Type: Report from Study
  Country: None (occurrence: US)
  Receive Date: 20180706
  Receipt Date: 20180706
  Transmission Date: 20181010
  Serious: Yes (Other)
  Sender: FDA-Public Use
  Company Number: US-ABBVIE-18K-163-2288451-00

PATIENT
  Age: 70 Year
  Sex: Female
  Weight: 98.97 kg

DRUGS (16)
  1. HUMIRA [Suspect]
     Active Substance: ADALIMUMAB
     Indication: CROHN^S DISEASE
     Route: 058
     Dates: start: 20180215, end: 20180215
  2. LASIX [Concomitant]
     Active Substance: FUROSEMIDE
     Indication: FLUID RETENTION
  3. VERAPAMIL [Concomitant]
     Active Substance: VERAPAMIL HYDROCHLORIDE
     Indication: HYPERTENSION
  4. HYDROCODONE [Concomitant]
     Active Substance: HYDROCODONE
     Indication: PAIN
  5. PAXIL [Concomitant]
     Active Substance: PAROXETINE HYDROCHLORIDE
     Indication: DEPRESSION
  6. COLACE [Concomitant]
     Active Substance: DOCUSATE SODIUM
     Indication: CONSTIPATION PROPHYLAXIS
  7. PRILOSEC [Concomitant]
     Active Substance: OMEPRAZOLE MAGNESIUM
     Indication: GASTROOESOPHAGEAL REFLUX DISEASE
  8. FENTANYL. [Concomitant]
     Active Substance: FENTANYL
     Indication: PAIN
     Dosage: PATCH
  9. HUMIRA [Suspect]
     Active Substance: ADALIMUMAB
     Route: 058
     Dates: start: 2018, end: 20180412
  10. GABAPENTIN. [Concomitant]
     Active Substance: GABAPENTIN
     Indication: NEUROPATHY PERIPHERAL
  11. XANAX [Concomitant]
     Active Substance: ALPRAZOLAM
     Indication: ANXIETY
  12. MIRALAX [Concomitant]
     Active Substance: POLYETHYLENE GLYCOL 3350
     Indication: CONSTIPATION
  13. HUMIRA [Suspect]
     Active Substance: ADALIMUMAB
     Route: 058
     Dates: start: 20180301, end: 20180301
  14. PROMETHAZINE [Concomitant]
     Active Substance: PROMETHAZINE\PROMETHAZINE HYDROCHLORIDE
     Indication: NAUSEA
  15. ADVAIR HFA [Concomitant]
     Active Substance: FLUTICASONE PROPIONATE\SALMETEROL XINAFOATE
     Indication: CHRONIC OBSTRUCTIVE PULMONARY DISEASE
  16. LEVOXYL [Concomitant]
     Active Substance: LEVOTHYROXINE SODIUM
     Indication: HYPOTHYROIDISM

REACTIONS (28)
  - Haemoptysis [Recovered/Resolved]
  - Tongue injury [Not Recovered/Not Resolved]
  - Productive cough [Recovered/Resolved]
  - Hypertension [Recovering/Resolving]
  - Nasopharyngitis [Unknown]
  - Pneumonia [Recovered/Resolved]
  - Cardiomegaly [Not Recovered/Not Resolved]
  - Tuberculosis [Not Recovered/Not Resolved]
  - Sinusitis [Recovered/Resolved]
  - Asthenia [Not Recovered/Not Resolved]
  - Mobility decreased [Not Recovered/Not Resolved]
  - Wheezing [Recovered/Resolved]
  - Sputum discoloured [Not Recovered/Not Resolved]
  - Dermatitis acneiform [Unknown]
  - Tachycardia [Recovered/Resolved]
  - Nausea [Recovering/Resolving]
  - Paraesthesia [Not Recovered/Not Resolved]
  - Glossodynia [Not Recovered/Not Resolved]
  - Malaise [Unknown]
  - Hypoxia [Unknown]
  - Gait inability [Unknown]
  - Rheumatoid arthritis [Not Recovered/Not Resolved]
  - Hypoaesthesia [Not Recovered/Not Resolved]
  - Chest pain [Recovered/Resolved]
  - Dyspnoea [Recovering/Resolving]
  - Device material issue [Unknown]
  - Rhonchi [Recovered/Resolved]
  - Serratia infection [Recovering/Resolving]

NARRATIVE: CASE EVENT DATE: 2018
